FAERS Safety Report 7600356-2 (Version None)
Quarter: 2011Q2

REPORT INFORMATION
  Report Type: 
  Country: None (occurrence: None)
  Receive Date: 20110624
  Receipt Date: 20110314
  Transmission Date: 20111010
  Serious: Yes (Other)
  Sender: FDA-Public Use
  Company Number: US-JNJFOC-20110304511

PATIENT
  Age: 49 Year
  Sex: Female
  Weight: 61.6892 kg

DRUGS (2)
  1. ACETAMINOPHEN [Concomitant]
  2. PEPCID AC [Suspect]
     Indication: GASTRIC DISORDER
     Dosage: IN 1 DAY, ORAL
     Route: 048
     Dates: start: 19990101

REACTIONS (7)
  - ABDOMINAL DISCOMFORT [None]
  - MUSCLE TIGHTNESS [None]
  - THROAT IRRITATION [None]
  - OVERDOSE [None]
  - DRUG INEFFECTIVE [None]
  - ERUCTATION [None]
  - PRODUCT QUALITY ISSUE [None]
